FAERS Safety Report 8103186-0 (Version None)
Quarter: 2012Q1

REPORT INFORMATION
  Report Type: 
  Country: None (occurrence: None)
  Receive Date: 20120127
  Receipt Date: 20120117
  Transmission Date: 20120608
  Serious: Yes (Hospitalization)
  Sender: FDA-Public Use
  Company Number: 1169552

PATIENT
  Age: 66 Year
  Sex: Female

DRUGS (5)
  1. CARBOPLATIN [Suspect]
     Indication: OVARIAN CANCER
     Dosage: 438 MG MILLIGRAM(S), INTRAVENOUS
     Route: 042
     Dates: start: 20110912, end: 20120104
  2. GEMCITABINE [Concomitant]
  3. DEXAMETHASONE SODIUM PHOSPHATE [Concomitant]
  4. (NAVOBAN) [Concomitant]
  5. )RANIDIL) [Concomitant]

REACTIONS (2)
  - OEDEMA PERIPHERAL [None]
  - GENERALISED ERYTHEMA [None]
